FAERS Safety Report 21357116 (Version 3)
Quarter: 2022Q4

REPORT INFORMATION
  Report Type: Spontaneous
  Country: FR (occurrence: FR)
  Receive Date: 20220921
  Receipt Date: 20221013
  Transmission Date: 20230113
  Serious: Yes (Hospitalization, Other)
  Sender: FDA-Public Use
  Company Number: FR-CELLTRION INC.-2022FR014849

PATIENT

DRUGS (1)
  1. INFLIXIMAB [Suspect]
     Active Substance: INFLIXIMAB
     Indication: Crohn^s disease
     Dosage: 2 SUBCUTANEOUS INJECTIONS (240MG) EVERY 2 WEEKS
     Route: 058
     Dates: start: 202105

REACTIONS (2)
  - Multiple sclerosis [Unknown]
  - Off label use [Unknown]

NARRATIVE: CASE EVENT DATE: 20220701
